FAERS Safety Report 18665452 (Version 1)
Quarter: 2020Q4

REPORT INFORMATION
  Report Type: Spontaneous
  Country: US (occurrence: US)
  Receive Date: 20201225
  Receipt Date: 20201225
  Transmission Date: 20210114
  Serious: No
  Sender: FDA-Public Use
  Company Number: US-B.I. PHARMACEUTICALS,INC./RIDGEFIELD-2020-BI-071278

PATIENT
  Age: 68 Year
  Sex: Male

DRUGS (3)
  1. JANUVIA [Concomitant]
     Active Substance: SITAGLIPTIN PHOSPHATE
     Indication: TYPE 2 DIABETES MELLITUS
     Dates: start: 2018, end: 202011
  2. JARDIANCE [Suspect]
     Active Substance: EMPAGLIFLOZIN
     Indication: TYPE 2 DIABETES MELLITUS
     Dosage: 10MG ONCE DAILY
     Dates: start: 2018, end: 202011
  3. NICARDIPINE [Concomitant]
     Active Substance: NICARDIPINE
     Indication: HYPERTENSION
     Dosage: 20MG

REACTIONS (3)
  - Vision blurred [Not Recovered/Not Resolved]
  - Fatigue [Recovered/Resolved]
  - Malaise [Recovered/Resolved]

NARRATIVE: CASE EVENT DATE: 2018
